FAERS Safety Report 7797003-6 (Version None)
Quarter: 2011Q4

REPORT INFORMATION
  Report Type: 
  Country: None (occurrence: None)
  Receive Date: 20111005
  Receipt Date: 20111005
  Transmission Date: 20120403
  Serious: Yes (Other)
  Sender: FDA-Public Use
  Company Number: None

PATIENT
  Sex: Female
  Weight: 65.77 kg

DRUGS (1)
  1. SYMBICORT [Suspect]
     Indication: ASTHMA
     Dosage: 2 PUFFS
     Route: 055
     Dates: start: 20080201, end: 20110920

REACTIONS (5)
  - APHTHOUS STOMATITIS [None]
  - SPEECH DISORDER [None]
  - WEIGHT DECREASED [None]
  - TONGUE DISORDER [None]
  - APHAGIA [None]
